FAERS Safety Report 5132666-5 (Version None)
Quarter: 2006Q4

REPORT INFORMATION
  Report Type: 
  Country: None (occurrence: None)
  Receive Date: 20061019
  Receipt Date: 20061019
  Transmission Date: 20070319
  Serious: Yes (Hospitalization)
  Sender: FDA-Public Use
  Company Number: None

PATIENT
  Sex: Male

DRUGS (27)
  1. DOXIL [Suspect]
     Indication: PROSTATE CANCER
     Dosage: 60 MG DAY 1 Q 28 IV DRIP
     Route: 041
     Dates: start: 20060727, end: 20060921
  2. TAXOTERE [Suspect]
     Indication: PROSTATE CANCER
     Dosage: 60 MG DAYS 1,8,15 Q 28 IV DRIP
     Route: 041
     Dates: start: 20060727, end: 20061005
  3. PHENERGAN [Concomitant]
  4. UROCET [Concomitant]
  5. DULCOLAX [Concomitant]
  6. XANAX [Concomitant]
  7. MS CONTIN [Concomitant]
  8. HYDROCODONE [Concomitant]
  9. ASPIRIN [Concomitant]
  10. LISINOPRIL [Concomitant]
  11. MEGESTROL AC [Concomitant]
  12. VITAMIN B COMPLEX CAP [Concomitant]
  13. ASCORBIC ACID [Concomitant]
  14. CITRACAL [Concomitant]
  15. PRILOSEC [Concomitant]
  16. COUMADIN [Concomitant]
  17. CRESTOR [Concomitant]
  18. LEVOXYL [Concomitant]
  19. LASIX [Concomitant]
  20. PATASSIUM KCL [Concomitant]
  21. MAG-OX [Concomitant]
  22. LOPERAMIDE [Concomitant]
  23. TRAZODONE HCL [Concomitant]
  24. PAXIL [Concomitant]
  25. GLUCOTROL XL [Concomitant]
  26. TOPROL-XL [Concomitant]
  27. DITOPAN [Concomitant]

REACTIONS (3)
  - ANAEMIA [None]
  - INTERNATIONAL NORMALISED RATIO INCREASED [None]
  - PAIN [None]
